FAERS Safety Report 20216390 (Version 1)
Quarter: 2021Q4

REPORT INFORMATION
  Report Type: Spontaneous
  Country: US (occurrence: None)
  Receive Date: 20211221
  Receipt Date: 20211221
  Transmission Date: 20220303
  Serious: No
  Sender: FDA-Public Use
  Company Number: None

PATIENT
  Sex: Female

DRUGS (1)
  1. STIVARGA [Suspect]
     Active Substance: REGORAFENIB
     Indication: Colon cancer
     Dosage: OTHER FREQUENCY : Q21 DAYS OF 28-DAY;?
     Route: 048

REACTIONS (3)
  - Blister [None]
  - Skin fissures [None]
  - Dry skin [None]
